FAERS Safety Report 17495234 (Version 1)
Quarter: 2020Q1

REPORT INFORMATION
  Report Type: Spontaneous
  Country: US (occurrence: US)
  Receive Date: 20200303
  Receipt Date: 20200303
  Transmission Date: 20200409
  Serious: Yes (Hospitalization)
  Sender: FDA-Public Use
  Company Number: None

PATIENT
  Age: 63 Year
  Sex: Female
  Weight: 82.6 kg

DRUGS (1)
  1. FAM-TRASTUZUMAB-DERUXTECAN [Suspect]
     Active Substance: TRASTUZUMAB DERUXTECAN
     Indication: BREAST CANCER METASTATIC
     Dates: start: 20200226

REACTIONS (3)
  - Dizziness [None]
  - Aphasia [None]
  - Nausea [None]

NARRATIVE: CASE EVENT DATE: 20200301
